FAERS Safety Report 11326197 (Version 2)
Quarter: 2015Q3

REPORT INFORMATION
  Report Type: Report from Study
  Country: AU (occurrence: AU)
  Receive Date: 20150731
  Receipt Date: 20150901
  Transmission Date: 20151125
  Serious: Yes (Hospitalization, Other)
  Sender: FDA-Public Use
  Company Number: PHHY2015AU091828

PATIENT
  Sex: Female

DRUGS (1)
  1. CLOZARIL [Suspect]
     Active Substance: CLOZAPINE
     Indication: SCHIZOPHRENIA
     Dosage: 250 OT, (UNIT UNSPECIFIED)
     Route: 048
     Dates: start: 20150422

REACTIONS (3)
  - Psychotic disorder [Unknown]
  - Huntington^s disease [Unknown]
  - Hip fracture [Unknown]
